FAERS Safety Report 7402344-8 (Version None)
Quarter: 2011Q1

REPORT INFORMATION
  Report Type: 
  Country: None (occurrence: None)
  Receive Date: 20110330
  Receipt Date: 20110330
  Transmission Date: 20110831
  Serious: Yes (Other)
  Sender: FDA-Public Use
  Company Number: MPS1-1000389

PATIENT
  Age: 5 Year
  Sex: Male
  Weight: 120 kg

DRUGS (5)
  1. BRONCHODILATORS NOS (BRONCHODILATORS NOS) [Concomitant]
  2. INHALED CORTICOSTEROIDS (INHALED CORTICOSTEROIDS) [Concomitant]
  3. ALDURAZYME [Suspect]
     Indication: MUCOPOLYSACCHARIDOSIS I
     Dosage: 0.54 MG/KG, 1X/1W, INTRAVENOUS
     Route: 042
     Dates: start: 20100714
  4. DIPHENHYDRAMINE HCL [Concomitant]
  5. PARACETAMOL (PARACETAMOL) [Concomitant]

REACTIONS (4)
  - CYANOSIS [None]
  - CYANOSIS CENTRAL [None]
  - DYSPNOEA [None]
  - TACHYPNOEA [None]
